FAERS Safety Report 6885838-3 (Version None)
Quarter: 2010Q3

REPORT INFORMATION
  Report Type: 
  Country: None (occurrence: None)
  Receive Date: 20100729
  Receipt Date: 20080906
  Transmission Date: 20110219
  Serious: No
  Sender: FDA-Public Use
  Company Number: US-PFIZER INC-2008069942

PATIENT
  Sex: Male
  Weight: 83.91 kg

DRUGS (9)
  1. CELEBREX [Suspect]
     Indication: MYALGIA
     Dosage: 100MG TO 200MG DAILY
     Route: 048
     Dates: start: 20080801
  2. CELEBREX [Suspect]
     Indication: ARTHRALGIA
  3. NEURONTIN [Concomitant]
     Indication: NEUROPATHY PERIPHERAL
  4. ACCUPRIL [Concomitant]
     Indication: HYPERTENSION
  5. HYDROCHLOROTHIAZIDE [Concomitant]
     Indication: HYPERTENSION
  6. PROSCAR [Concomitant]
     Indication: BENIGN PROSTATIC HYPERPLASIA
  7. XALATAN [Concomitant]
     Indication: GLAUCOMA
  8. NEXIUM [Concomitant]
     Indication: GASTROOESOPHAGEAL REFLUX DISEASE
  9. DILAUDID [Concomitant]
     Indication: PAIN IN EXTREMITY

REACTIONS (1)
  - DRUG INEFFECTIVE [None]
